FAERS Safety Report 6282608-4 (Version None)
Quarter: 2009Q3

REPORT INFORMATION
  Report Type: 
  Country: None (occurrence: None)
  Receive Date: 20090724
  Receipt Date: 20090714
  Transmission Date: 20100115
  Serious: Yes (Other)
  Sender: FDA-Public Use
  Company Number: PHEH2008US07366

PATIENT
  Sex: Male

DRUGS (5)
  1. ZOMETA [Suspect]
     Indication: OSTEOLYSIS
     Dosage: 4MG MONTHLY
  2. RADIATION THERAPY [Concomitant]
  3. PERCOCET [Concomitant]
     Indication: PAIN
  4. THALIDOMIDE [Concomitant]
  5. CHEMOTHERAPEUTICS NOS [Concomitant]

REACTIONS (19)
  - ABDOMINAL PAIN [None]
  - ANXIETY [None]
  - CHEST PAIN [None]
  - DECREASED INTEREST [None]
  - GENERAL PHYSICAL HEALTH DETERIORATION [None]
  - GROIN PAIN [None]
  - HEPATIC CYST [None]
  - HYPOAESTHESIA [None]
  - INFLUENZA LIKE ILLNESS [None]
  - LUNG NEOPLASM MALIGNANT [None]
  - MALAISE [None]
  - MEDIASTINAL DISORDER [None]
  - MULTIPLE MYELOMA [None]
  - OSTEONECROSIS [None]
  - PAIN [None]
  - PELVIC FRACTURE [None]
  - PLASMACYTOMA [None]
  - PULMONARY MASS [None]
  - SPINAL OSTEOARTHRITIS [None]
